FAERS Safety Report 26132918 (Version 1)
Quarter: 2025Q4

REPORT INFORMATION
  Report Type: Spontaneous
  Country: US (occurrence: US)
  Receive Date: 20251209
  Receipt Date: 20251209
  Transmission Date: 20260118
  Serious: Yes (Life-Threatening, Hospitalization, Other)
  Sender: ASCEND THERAPEUTICS US, LLC
  Company Number: US-Ascend Therapeutics US, LLC-2190148

PATIENT
  Age: 45 Year
  Sex: Male

DRUGS (2)
  1. ANDROGEL [Suspect]
     Active Substance: TESTOSTERONE
     Indication: Hormone replacement therapy
  2. TESTOSTERONE [Suspect]
     Active Substance: TESTOSTERONE

REACTIONS (3)
  - Deep vein thrombosis [Unknown]
  - Polycythaemia [Unknown]
  - Pulmonary embolism [Unknown]
